FAERS Safety Report 16315455 (Version 3)
Quarter: 2019Q2

REPORT INFORMATION
  Report Type: Spontaneous
  Country: IT (occurrence: IT)
  Receive Date: 20190515
  Receipt Date: 20190605
  Transmission Date: 20190711
  Serious: Yes (Other)
  Sender: FDA-Public Use
  Company Number: IT-AMREGENT-20190941

PATIENT
  Age: 25 Year
  Sex: Female
  Weight: 71 kg

DRUGS (2)
  1. FERINJECT [Suspect]
     Active Substance: FERRIC CARBOXYMALTOSE
     Dosage: 1000 MG, 1 TOTAL
     Route: 041
     Dates: start: 20190410, end: 20190410
  2. REMSIMA [Suspect]
     Active Substance: INFLIXIMAB
     Dosage: 400 MG , 1 CYCLICAL
     Route: 041
     Dates: start: 20190207, end: 20190410

REACTIONS (5)
  - Lymphadenopathy [Unknown]
  - Urticaria [Unknown]
  - Headache [Unknown]
  - Pruritus [Unknown]
  - Hyperpyrexia [Unknown]

NARRATIVE: CASE EVENT DATE: 20190412
